FAERS Safety Report 14869819 (Version 2)
Quarter: 2018Q3

REPORT INFORMATION
  Report Type: Spontaneous
  Country: US (occurrence: US)
  Receive Date: 20180509
  Receipt Date: 20180712
  Transmission Date: 20181010
  Serious: Yes (Other)
  Sender: FDA-Public Use
  Company Number: US-009507513-1805USA001958

PATIENT
  Age: 4 Year
  Sex: Female

DRUGS (3)
  1. VINCRISTINE SULFATE. [Suspect]
     Active Substance: VINCRISTINE SULFATE
  2. TEMODAR [Suspect]
     Active Substance: TEMOZOLOMIDE
     Indication: OPTIC GLIOMA
     Dosage: UNK
     Route: 048
  3. CARBOPLATIN. [Suspect]
     Active Substance: CARBOPLATIN
     Indication: OPTIC GLIOMA
     Dosage: UNK

REACTIONS (3)
  - Off label use [Unknown]
  - Neutropenia [Unknown]
  - Neuropathy peripheral [Unknown]
